FAERS Safety Report 16648105 (Version 1)
Quarter: 2019Q3

REPORT INFORMATION
  Report Type: Spontaneous
  Country: US (occurrence: US)
  Receive Date: 20190617
  Receipt Date: 20190617
  Transmission Date: 20191004
  Serious: No
  Sender: FDA-Public Use
  Company Number: None

PATIENT
  Age: 56 Year
  Sex: Male

DRUGS (1)
  1. LEDIP/SOFOSB TAB (90-400MG TAB 2X14) [Suspect]
     Active Substance: LEDIPASVIR\SOFOSBUVIR
     Dates: start: 20190605

REACTIONS (1)
  - Product use issue [None]

NARRATIVE: CASE EVENT DATE: 20190616
